FAERS Safety Report 5642457-4 (Version None)
Quarter: 2008Q1

REPORT INFORMATION
  Report Type: 
  Country: None (occurrence: None)
  Receive Date: 20080228
  Receipt Date: 20080221
  Transmission Date: 20080703
  Serious: Yes (Death)
  Sender: FDA-Public Use
  Company Number: US-JNJFOC-20071007225

PATIENT
  Sex: Male
  Weight: 112.49 kg

DRUGS (1)
  1. DURAGESIC-100 [Suspect]
     Indication: PAIN
     Route: 062

REACTIONS (2)
  - DRUG TOXICITY [None]
  - PHARMACEUTICAL PRODUCT COMPLAINT [None]
